FAERS Safety Report 6265401-8 (Version None)
Quarter: 2009Q3

REPORT INFORMATION
  Report Type: 
  Country: None (occurrence: None)
  Receive Date: 20090713
  Receipt Date: 20090703
  Transmission Date: 20100115
  Serious: Yes (Death)
  Sender: FDA-Public Use
  Company Number: FR-BAYER-200924938GPV

PATIENT
  Age: 52 Year
  Sex: Male

DRUGS (3)
  1. CIFLOX [Suspect]
     Indication: BRONCHITIS
     Route: 048
     Dates: start: 20080404
  2. PREDNISOLONE [Suspect]
     Indication: BRONCHITIS
     Route: 048
     Dates: start: 20080404
  3. DAFALGAN [Suspect]
     Indication: BRONCHITIS
     Route: 065
     Dates: start: 20080404

REACTIONS (1)
  - CARDIAC FAILURE [None]
